FAERS Safety Report 23763217 (Version 2)
Quarter: 2024Q2

REPORT INFORMATION
  Report Type: Spontaneous
  Country: US (occurrence: None)
  Receive Date: 20240419
  Receipt Date: 20240603
  Transmission Date: 20240715
  Serious: Yes (Life-Threatening, Hospitalization, Other)
  Sender: FDA-Public Use
  Company Number: 2024A092544

PATIENT
  Age: 46 Year
  Sex: Male
  Weight: 107.5 kg

DRUGS (2)
  1. SEROQUEL [Suspect]
     Active Substance: QUETIAPINE FUMARATE
     Indication: Bipolar disorder
     Route: 048
  2. PAXIL [Concomitant]
     Active Substance: PAROXETINE HYDROCHLORIDE
     Indication: Depression

REACTIONS (6)
  - Overdose [Unknown]
  - Suicide attempt [Unknown]
  - Eye disorder [Unknown]
  - Quality of life decreased [Unknown]
  - Depression [Unknown]
  - Substance abuse [Unknown]
